FAERS Safety Report 24283413 (Version 2)
Quarter: 2024Q3

REPORT INFORMATION
  Report Type: Spontaneous
  Country: US (occurrence: US)
  Receive Date: 20240904
  Receipt Date: 20240923
  Transmission Date: 20241017
  Serious: No
  Sender: ROCHE
  Company Number: US-ROCHE-10000065398

PATIENT
  Age: 13 Year
  Sex: Male
  Weight: 41.73 kg

DRUGS (1)
  1. NUTROPIN [Suspect]
     Active Substance: SOMATROPIN
     Indication: Product used for unknown indication
     Dosage: NIGHTLY
     Route: 058
     Dates: start: 202308

REACTIONS (6)
  - Device issue [Unknown]
  - Device defective [Unknown]
  - Device failure [Unknown]
  - Needle issue [Unknown]
  - Incorrect dose administered by device [Unknown]
  - No adverse event [Unknown]

NARRATIVE: CASE EVENT DATE: 20240820
